FAERS Safety Report 8257028-3 (Version None)
Quarter: 2012Q2

REPORT INFORMATION
  Report Type: 
  Country: None (occurrence: None)
  Receive Date: 20120403
  Receipt Date: 20120329
  Transmission Date: 20120825
  Serious: Yes (Other)
  Sender: FDA-Public Use
  Company Number: US-GLAXOSMITHKLINE-A0971914A

PATIENT
  Age: 51 Year
  Sex: Female
  Weight: 47.6 kg

DRUGS (9)
  1. CALCIUM + D [Concomitant]
  2. XANAX [Concomitant]
  3. MULTI-VITAMIN [Concomitant]
  4. VIREAD [Suspect]
     Indication: HEPATITIS B
     Dosage: 300MG PER DAY
     Route: 048
     Dates: start: 20120208
  5. TRAMADOL HCL [Concomitant]
  6. IRON [Concomitant]
  7. PAXIL [Suspect]
     Indication: DEPRESSION
     Route: 048
  8. MESALAMINE [Concomitant]
  9. PHENERGAN HCL [Concomitant]

REACTIONS (3)
  - CREATININE RENAL CLEARANCE INCREASED [None]
  - MALABSORPTION [None]
  - HYPOKALAEMIA [None]
